FAERS Safety Report 8605802-3 (Version None)
Quarter: 2012Q3

REPORT INFORMATION
  Report Type: 
  Country: None (occurrence: None)
  Receive Date: 20120820
  Receipt Date: 20120809
  Transmission Date: 20120928
  Serious: Yes (Hospitalization)
  Sender: FDA-Public Use
  Company Number: US-ROCHE-1090020

PATIENT
  Age: 70 Year
  Sex: Female
  Weight: 55.5 kg

DRUGS (9)
  1. AVASTIN [Suspect]
     Dates: start: 20120312
  2. DASATINIB [Suspect]
     Indication: NEOPLASM
     Dosage: 100 MG PO QD CYCLE 1,2 CYCLE=28 DAYS,SOB OCCURED DURING C3 ON 30/MAR/2012.DASATINIB WAS HELD BETWEEN
     Route: 048
     Dates: start: 20120109
  3. METOPROLOL TARTRATE [Concomitant]
  4. GLIPIZIDE [Concomitant]
  5. JANUVIA [Concomitant]
  6. MAGNESIUM [Concomitant]
  7. TRIPLEX AD (UNITED STATES) [Concomitant]
  8. AVASTIN [Suspect]
     Indication: NEOPLASM
     Dosage: 10 MG/KG OVER 30-90 MIN Q 2 WKS, CYCLE=28 DAYS (CYCLE2+) LAST DOSE ADMINISTERED ON 04/JUN/2012,C3 WA
     Route: 042
     Dates: start: 20120109, end: 20120305
  9. LEVOTHYROXINE SODIUM [Concomitant]

REACTIONS (2)
  - URINARY TRACT OBSTRUCTION [None]
  - SMALL INTESTINAL OBSTRUCTION [None]
